FAERS Safety Report 14165845 (Version 1)
Quarter: 2017Q4

REPORT INFORMATION
  Report Type: Spontaneous
  Country: SE (occurrence: SE)
  Receive Date: 20171107
  Receipt Date: 20171107
  Transmission Date: 20180321
  Serious: Yes (Other)
  Sender: FDA-Public Use
  Company Number: SE-TEVA-820590ISR

PATIENT
  Age: 95 Year
  Sex: Female

DRUGS (1)
  1. ATENOLOL ACTAVIS [Suspect]
     Active Substance: ATENOLOL
     Route: 048
     Dates: start: 2016

REACTIONS (5)
  - Product substitution issue [Unknown]
  - Transient ischaemic attack [Unknown]
  - Blood pressure fluctuation [Unknown]
  - Pulse abnormal [Unknown]
  - Peripheral swelling [Unknown]
